FAERS Safety Report 15096273 (Version 3)
Quarter: 2018Q3

REPORT INFORMATION
  Report Type: Spontaneous
  Country: US (occurrence: US)
  Receive Date: 20180702
  Receipt Date: 20180808
  Transmission Date: 20181010
  Serious: No
  Sender: FDA-Public Use
  Company Number: US-PFIZER INC-2018262250

PATIENT
  Age: 62 Year
  Sex: Female

DRUGS (13)
  1. MONTELUKAST [Concomitant]
     Active Substance: MONTELUKAST SODIUM
     Dosage: 10 MG, UNK
  2. SULFASALAZINE. [Concomitant]
     Active Substance: SULFASALAZINE
     Dosage: 500 MG, UNK
  3. PREDNISONE. [Concomitant]
     Active Substance: PREDNISONE
     Dosage: 10 MG, UNK
  4. XELJANZ XR [Suspect]
     Active Substance: TOFACITINIB CITRATE
     Indication: RHEUMATOID ARTHRITIS
     Dosage: 11 MG, DAILY (1 TABLET DAILY)
     Route: 048
  5. DULOXETINE HYDROCHLORIDE. [Concomitant]
     Active Substance: DULOXETINE HYDROCHLORIDE
     Dosage: 60 MG, UNK
  6. VIMPAT [Concomitant]
     Active Substance: LACOSAMIDE
     Dosage: 100 MG, UNK
  7. GABAPENTIN. [Concomitant]
     Active Substance: GABAPENTIN
     Dosage: 800 MG, UNK
  8. PAROXETINE HCL [Concomitant]
     Active Substance: PAROXETINE HYDROCHLORIDE
     Dosage: 30 MG, UNK
  9. AMITRIPTYLINE [Concomitant]
     Active Substance: AMITRIPTYLINE
     Dosage: 50 MG, UNK
  10. HUMIRA [Concomitant]
     Active Substance: ADALIMUMAB
     Dosage: UNK [PEN PNK 40MG/0.8ML]
  11. METOPROLOL TARTRATE. [Concomitant]
     Active Substance: METOPROLOL TARTRATE
     Dosage: 25 MG, UNK
  12. PAROXETINE HCL [Concomitant]
     Active Substance: PAROXETINE HYDROCHLORIDE
     Dosage: 20 MG, UNK
  13. VENTOLIN HFA [Concomitant]
     Active Substance: ALBUTEROL SULFATE
     Dosage: UNK [AER 108 (90)]

REACTIONS (3)
  - Migraine [Not Recovered/Not Resolved]
  - Decreased appetite [Not Recovered/Not Resolved]
  - Nasal congestion [Not Recovered/Not Resolved]
